FAERS Safety Report 25432668 (Version 1)
Quarter: 2025Q2

REPORT INFORMATION
  Report Type: Spontaneous
  Country: JP (occurrence: JP)
  Receive Date: 20250613
  Receipt Date: 20250613
  Transmission Date: 20250716
  Serious: Yes (Other)
  Sender: RANBAXY
  Company Number: JP-SUN PHARMACEUTICAL INDUSTRIES LTD-2025RR-511454

PATIENT
  Age: 8 Decade
  Sex: Female

DRUGS (8)
  1. OLANZAPINE [Suspect]
     Active Substance: OLANZAPINE
     Indication: Dementia with Lewy bodies
     Route: 065
  2. DONEPEZIL [Suspect]
     Active Substance: DONEPEZIL
     Indication: Dementia with Lewy bodies
     Route: 065
  3. DONEPEZIL [Suspect]
     Active Substance: DONEPEZIL
     Route: 065
  4. PREGABALIN [Suspect]
     Active Substance: PREGABALIN
     Indication: Pain
     Route: 065
  5. ARIPIPRAZOLE [Suspect]
     Active Substance: ARIPIPRAZOLE
     Indication: Dementia with Lewy bodies
     Dosage: 2 MILLIGRAM, DAILY
     Route: 065
  6. TRAMADOL [Suspect]
     Active Substance: TRAMADOL
     Indication: Back pain
     Route: 065
  7. ACETAMINOPHEN [Suspect]
     Active Substance: ACETAMINOPHEN
     Indication: Back pain
     Route: 065
  8. MIROGABALIN [Suspect]
     Active Substance: MIROGABALIN
     Indication: Pain
     Dosage: 15 MILLIGRAM, DAILY
     Route: 065

REACTIONS (2)
  - Drug ineffective [Unknown]
  - Substance-induced psychotic disorder [Recovering/Resolving]
